FAERS Safety Report 18928617 (Version 4)
Quarter: 2025Q2

REPORT INFORMATION
  Report Type: Report from Study
  Country: US (occurrence: US)
  Receive Date: 20210223
  Receipt Date: 20250428
  Transmission Date: 20250717
  Serious: No
  Sender: KYOWA
  Company Number: US-KYOWAKIRIN-2021BKK002741

PATIENT

DRUGS (3)
  1. BUROSUMAB [Suspect]
     Active Substance: BUROSUMAB
     Indication: Hereditary hypophosphataemic rickets
     Dosage: 40 MG, 1X/2 WEEKS
     Route: 058
     Dates: start: 202011
  2. BUROSUMAB [Suspect]
     Active Substance: BUROSUMAB
     Dosage: 80 MG EVERY 2 WEEKS
     Route: 058
     Dates: start: 20210413
  3. BUROSUMAB [Suspect]
     Active Substance: BUROSUMAB
     Indication: Hereditary hypophosphataemic rickets
     Dosage: 90 MG, 1X/2 WEEKS
     Route: 058
     Dates: start: 202011

REACTIONS (4)
  - Blood phosphorus decreased [Unknown]
  - Attention deficit hyperactivity disorder [Unknown]
  - Restless legs syndrome [Unknown]
  - Pain in extremity [Unknown]
